FAERS Safety Report 16671125 (Version 2)
Quarter: 2019Q3

REPORT INFORMATION
  Report Type: Spontaneous
  Country: JP (occurrence: JP)
  Receive Date: 20190805
  Receipt Date: 20190820
  Transmission Date: 20191004
  Serious: No
  Sender: FDA-Public Use
  Company Number: JP-ALEXION-A201911294

PATIENT

DRUGS (2)
  1. SOLIRIS [Suspect]
     Active Substance: ECULIZUMAB
     Indication: FOETAL EXPOSURE DURING PREGNANCY
     Dosage: 900 MG, Q2W
     Route: 064
     Dates: start: 201810, end: 20190628
  2. SOLIRIS [Suspect]
     Active Substance: ECULIZUMAB
     Indication: EXPOSURE VIA BREAST MILK
     Dosage: 900 MG, Q2W
     Route: 063
     Dates: start: 20190629

REACTIONS (2)
  - Exposure via breast milk [Unknown]
  - Foetal exposure during pregnancy [Unknown]

NARRATIVE: CASE EVENT DATE: 201810
